FAERS Safety Report 4912203-8 (Version None)
Quarter: 2006Q1

REPORT INFORMATION
  Report Type: 
  Country: None (occurrence: None)
  Receive Date: 20060215
  Receipt Date: 20050929
  Transmission Date: 20060701
  Serious: No
  Sender: FDA-Public Use
  Company Number: US-GLAXOSMITHKLINE-A0576396A

PATIENT
  Age: 61 Year
  Sex: Female

DRUGS (2)
  1. VALTREX [Suspect]
     Dosage: 1G THREE TIMES PER DAY
     Route: 048
     Dates: start: 20050926, end: 20050929
  2. LIPITOR [Concomitant]

REACTIONS (2)
  - MEDICATION ERROR [None]
  - PARAESTHESIA ORAL [None]
